FAERS Safety Report 21041854 (Version 1)
Quarter: 2022Q3

REPORT INFORMATION
  Report Type: Spontaneous
  Country: NO (occurrence: NO)
  Receive Date: 20220705
  Receipt Date: 20220705
  Transmission Date: 20221027
  Serious: Yes (Life-Threatening, Other)
  Sender: FDA-Public Use
  Company Number: None

PATIENT
  Age: 33 Year
  Sex: Female
  Weight: 55 kg

DRUGS (4)
  1. REMERON [Suspect]
     Active Substance: MIRTAZAPINE
     Indication: Anxiety
     Dosage: AT BED TIME
     Dates: start: 20220429, end: 20220605
  2. REMERON [Suspect]
     Active Substance: MIRTAZAPINE
     Indication: Depression
  3. MELATONIN [Concomitant]
     Active Substance: MELATONIN
     Indication: Sleep disorder
     Dosage: UNK
  4. VITAMINS NOS [Concomitant]
     Active Substance: VITAMINS
     Dosage: UNK

REACTIONS (7)
  - Depression [Not Recovered/Not Resolved]
  - Suicidal behaviour [Not Recovered/Not Resolved]
  - Anxiety [Unknown]
  - Depressed mood [Unknown]
  - Suicidal ideation [Not Recovered/Not Resolved]
  - Fear of death [Not Recovered/Not Resolved]
  - Grief reaction [Unknown]

NARRATIVE: CASE EVENT DATE: 20220501
